FAERS Safety Report 9237931 (Version 1)
Quarter: 2013Q1

REPORT INFORMATION
  Report Type: Spontaneous
  Country: US (occurrence: None)
  Receive Date: 20121107
  Receipt Date: 20121107
  Transmission Date: 20140127
  Serious: No
  Sender: FDA-Public Use
  Company Number: 2012HGS-003717

PATIENT
  Age: 73 Year
  Sex: Female
  Weight: 99.79 kg

DRUGS (9)
  1. BENLYSTA [Suspect]
     Indication: SYSTEMIC LUPUS ERYTHEMATOSUS
     Dosage: 1 IN 28 D
     Route: 041
     Dates: start: 20120417
  2. PREDNISONE (PREDNISONE) (PREDNISONE) [Concomitant]
  3. PLAQUENIL (HYDROXYCHLOROQUINE SULFATE) (HYDROXYCHLOROQUINE SULFATE) [Concomitant]
  4. ESTROGEN (ESTRADIOL) (ESTRADIOL) [Concomitant]
  5. HYDROCHLOROTHIAZIDE (HYDROCHOLROTHIAZIDE) (HYDROCHLOROTHIAZIDE) [Concomitant]
  6. FISH OIL (FISH OIL) (FISH OIL) [Concomitant]
  7. CALTRATE (CALCIUM CARBONATE) (CALCIUM CARBONATE) [Concomitant]
  8. BENADRYL (DIPHENHYDRAMINE HYDROCHLORIDE) (DIPHENHYDRAMINE HYDROCHLORIDE) [Concomitant]
  9. TYLENOL ARTHRITIS (PARACETAMOL) (PARACETAMOL) [Concomitant]

REACTIONS (3)
  - Local swelling [None]
  - Joint swelling [None]
  - Urinary tract infection [None]
